FAERS Safety Report 24396751 (Version 1)
Quarter: 2024Q4

REPORT INFORMATION
  Report Type: Spontaneous
  Country: ZA (occurrence: ZA)
  Receive Date: 20241004
  Receipt Date: 20241004
  Transmission Date: 20250114
  Serious: Yes (Other)
  Sender: LUPIN
  Company Number: ZA-LUPIN PHARMACEUTICALS INC.-2024-09585

PATIENT

DRUGS (12)
  1. DESVENLAFAXINE SUCCINATE [Suspect]
     Active Substance: DESVENLAFAXINE SUCCINATE
     Indication: Depression
     Dosage: 50 MILLIGRAM, QD, TAKE ONE TABLET DAILY
     Route: 048
  2. BEZAFIBRATE [Concomitant]
     Active Substance: BEZAFIBRATE
     Indication: Blood cholesterol abnormal
     Dosage: 400 MILLIGRAM, QD, TAKE ONE TABLET DAILY
     Route: 048
  3. ROSUVASTATIN [Concomitant]
     Active Substance: ROSUVASTATIN
     Indication: Blood cholesterol abnormal
     Dosage: 10 MILLIGRAM, QD, TAKE ONE TABLET DAILY
     Route: 048
  4. Reparil [Concomitant]
     Indication: Product used for unknown indication
     Dosage: UNK, AS PER FOLDED TICKET
     Route: 061
  5. IBUMOL [Concomitant]
     Indication: Product used for unknown indication
     Dosage: UNK, AS PER FOLDED TICKET
     Route: 048
  6. CLOBAZAM [Concomitant]
     Active Substance: CLOBAZAM
     Indication: Anxiety
     Dosage: 10 MILLIGRAM, TAKE A TABLET AT NIGHT
     Route: 048
  7. ECOTRIN [Concomitant]
     Active Substance: ASPIRIN
     Indication: Anticoagulant therapy
     Dosage: 81 MILLIGRAM, TAKE ONE TABLET EVERY SECOND DAY
     Route: 048
  8. ECOTRIN [Concomitant]
     Active Substance: ASPIRIN
     Dosage: 81 MILLIGRAM, TAKE ONE TABLET EVERY SECOND DAY
     Route: 048
  9. ESCITALOPRAM [Concomitant]
     Active Substance: ESCITALOPRAM OXALATE
     Indication: Depression
     Dosage: 20 MILLIGRAM, QD, TAKE ONE TABLET DAILY
     Route: 048
  10. AMMONIUM CHLORIDE\DIPHENHYDRAMINE\ETOFYLLINE\SODIUM CITRATE\THEOPHYLLI [Concomitant]
     Active Substance: AMMONIUM CHLORIDE\DIPHENHYDRAMINE\ETOFYLLINE\SODIUM CITRATE\THEOPHYLLINE
     Indication: Product used for unknown indication
     Dosage: UNK, AS PER FOLDED TICKET
     Route: 065
  11. CETIRIZINE HYDROCHLORIDE [Concomitant]
     Active Substance: CETIRIZINE HYDROCHLORIDE
     Indication: Hypersensitivity
     Dosage: 10 MILLIGRAM, AS INDICATED
     Route: 048
  12. ETORICOXIB [Concomitant]
     Active Substance: ETORICOXIB
     Indication: Product used for unknown indication
     Dosage: 90 MILLIGRAM, QD, TAKE ONE TABLET DAILY
     Route: 048

REACTIONS (4)
  - Gastric haemorrhage [Unknown]
  - Condition aggravated [Unknown]
  - Adverse drug reaction [Unknown]
  - Diarrhoea haemorrhagic [Unknown]
